FAERS Safety Report 10015247 (Version 3)
Quarter: 2014Q2

REPORT INFORMATION
  Report Type: Spontaneous
  Country: US (occurrence: US)
  Receive Date: 20140317
  Receipt Date: 20140617
  Transmission Date: 20141212
  Serious: No
  Sender: FDA-Public Use
  Company Number: US-PFIZER INC-2014073703

PATIENT
  Age: 55 Year
  Sex: Male
  Weight: 76.64 kg

DRUGS (4)
  1. SUTENT [Suspect]
     Indication: RENAL CELL CARCINOMA
     Dosage: 50 MG, QD
     Route: 048
     Dates: start: 20140308, end: 20140308
  2. SUTENT [Suspect]
     Dosage: 50 MG, 1X/DAY
     Route: 048
     Dates: start: 20140402, end: 20140403
  3. DURAGESIC [Concomitant]
     Indication: CANCER PAIN
     Dosage: 75 UG, UNK
  4. PERCOCET [Concomitant]
     Dosage: UNK

REACTIONS (2)
  - Rash generalised [Recovered/Resolved]
  - Rash macular [Recovered/Resolved]
